FAERS Safety Report 8331881-7 (Version None)
Quarter: 2012Q2

REPORT INFORMATION
  Report Type: 
  Country: None (occurrence: None)
  Receive Date: 20120502
  Receipt Date: 20120424
  Transmission Date: 20120825
  Serious: No
  Sender: FDA-Public Use
  Company Number: US-AMGEN-USASP2012025883

PATIENT
  Age: 40 Year
  Sex: Male

DRUGS (2)
  1. TREXALL [Concomitant]
     Dosage: 3 MG, UNK
     Dates: start: 20120420
  2. ENBREL [Suspect]
     Indication: RHEUMATOID ARTHRITIS
     Dosage: 25 MG, 2 TIMES/WK
     Dates: start: 20120418

REACTIONS (6)
  - FATIGUE [None]
  - HYPERTENSION [None]
  - DISCOMFORT [None]
  - INSOMNIA [None]
  - IRRITABILITY [None]
  - ASTHENIA [None]
